FAERS Safety Report 15348879 (Version 2)
Quarter: 2018Q4

REPORT INFORMATION
  Report Type: Spontaneous
  Country: JP (occurrence: JP)
  Receive Date: 20180904
  Receipt Date: 20181018
  Transmission Date: 20190204
  Serious: Yes (Other)
  Sender: FDA-Public Use
  Company Number: JP-JNJFOC-20180843408

PATIENT
  Age: 7 Decade
  Sex: Male

DRUGS (1)
  1. XARELTO [Suspect]
     Active Substance: RIVAROXABAN
     Indication: EMBOLISM VENOUS
     Route: 048

REACTIONS (1)
  - Cerebral infarction [Not Recovered/Not Resolved]
